FAERS Safety Report 9135612 (Version 1)
Quarter: 2013Q1

REPORT INFORMATION
  Report Type: Spontaneous
  Country: US (occurrence: US)
  Receive Date: 20130304
  Receipt Date: 20130304
  Transmission Date: 20140127
  Serious: No
  Sender: FDA-Public Use
  Company Number: US-ENDO PHARMACEUTICALS INC.-PERC20120099

PATIENT
  Sex: Male

DRUGS (3)
  1. PERCOCET 10/325 1 [Suspect]
     Indication: NECK PAIN
     Dosage: 60 MG/1950 MG
     Route: 048
  2. PERCOCET 10/325 1 [Suspect]
     Indication: ARTHRALGIA
  3. PERCOCET 10/325 1 [Suspect]
     Indication: ARTHRITIS

REACTIONS (3)
  - Feeling jittery [Unknown]
  - Abdominal discomfort [Unknown]
  - Nausea [Unknown]
